FAERS Safety Report 5968976-9 (Version None)
Quarter: 2008Q4

REPORT INFORMATION
  Report Type: 
  Country: None (occurrence: None)
  Receive Date: 20081126
  Receipt Date: 20081117
  Transmission Date: 20090506
  Serious: Yes (Life-Threatening, Hospitalization)
  Sender: FDA-Public Use
  Company Number: AU-ROCHE-597521

PATIENT
  Sex: Male
  Weight: 80 kg

DRUGS (3)
  1. CEFTRIAXONE [Suspect]
     Indication: PNEUMONIA
     Dosage: ONE TIME.
     Route: 065
     Dates: start: 20080905
  2. HYDROCORTISONE [Concomitant]
     Indication: ENDOCARDIAL DISEASE
     Dates: start: 20080904, end: 20080910
  3. VENTOLIN [Concomitant]
     Dates: start: 20080904

REACTIONS (3)
  - DYSPNOEA [None]
  - RASH [None]
  - WHEEZING [None]
